FAERS Safety Report 11698347 (Version 1)
Quarter: 2015Q4

REPORT INFORMATION
  Report Type: Spontaneous
  Country: US (occurrence: US)
  Receive Date: 20151104
  Receipt Date: 20151104
  Transmission Date: 20160304
  Serious: No
  Sender: FDA-Public Use
  Company Number: US-ELI_LILLY_AND_COMPANY-US201012000111

PATIENT
  Sex: Female

DRUGS (2)
  1. FORTEO [Suspect]
     Active Substance: TERIPARATIDE
     Indication: OSTEOPOROSIS
     Dosage: 20 UG, DAILY (1/D)
     Dates: start: 20101118
  2. FORTEO [Suspect]
     Active Substance: TERIPARATIDE
     Dosage: 20 UG, DAILY (1/D)

REACTIONS (14)
  - Arthritis [Unknown]
  - Injection site bruising [Unknown]
  - Irritable bowel syndrome [Unknown]
  - Fear of eating [Unknown]
  - Abdominal discomfort [Unknown]
  - Burning sensation [Unknown]
  - Abdominal pain upper [Unknown]
  - Erythema [Unknown]
  - Arthralgia [Unknown]
  - Diarrhoea [Unknown]
  - Hypophagia [Unknown]
  - Joint swelling [Unknown]
  - Injection site erythema [Unknown]
  - Injection site pain [Unknown]
